FAERS Safety Report 5106247-3 (Version None)
Quarter: 2006Q3

REPORT INFORMATION
  Report Type: 
  Country: None (occurrence: None)
  Receive Date: 20060918
  Receipt Date: 20060904
  Transmission Date: 20061208
  Serious: Yes (Other)
  Sender: FDA-Public Use
  Company Number: PHEH2006US11304

PATIENT
  Sex: Female

DRUGS (2)
  1. COMTAN [Suspect]
  2. SINEMET [Concomitant]

REACTIONS (4)
  - BLOOD PRESSURE FLUCTUATION [None]
  - BODY TEMPERATURE FLUCTUATION [None]
  - MUSCLE RIGIDITY [None]
  - SEROTONIN SYNDROME [None]
